FAERS Safety Report 5596525-6 (Version None)
Quarter: 2007Q4

REPORT INFORMATION
  Report Type: 
  Country: None (occurrence: None)
  Receive Date: 20071219
  Receipt Date: 20071011
  Transmission Date: 20080405
  Serious: Yes (Other)
  Sender: FDA-Public Use
  Company Number: US-WYE-H00695207

PATIENT
  Age: 37 Year
  Sex: Female
  Weight: 58.11 kg

DRUGS (1)
  1. TORISEL [Suspect]
     Indication: RENAL CELL CARCINOMA STAGE UNSPECIFIED
     Dosage: INTRAVENOUS
     Route: 042

REACTIONS (4)
  - ACCIDENTAL EXPOSURE [None]
  - BURNING SENSATION [None]
  - ERYTHEMA [None]
  - PRURITUS [None]
